FAERS Safety Report 8733175 (Version 2)
Quarter: 2012Q4

REPORT INFORMATION
  Report Type: 
  Country: US (occurrence: US)
  Receive Date: 20120821
  Receipt Date: 20121011
  Transmission Date: 20130627
  Serious: Yes (Hospitalization)
  Sender: FDA-Public Use
  Company Number: US-AMGEN-USASP2012052283

PATIENT
  Sex: Female

DRUGS (2)
  1. NEULASTA [Suspect]
     Indication: CHEMOTHERAPY
     Dosage: 6 mg, UNK
     Route: 058
     Dates: start: 20120601
  2. ANTINEOPLASTIC AGENTS [Concomitant]
     Indication: SMALL CELL CARCINOMA

REACTIONS (6)
  - Bladder cancer [Unknown]
  - Dizziness [Recovered/Resolved]
  - Asthenia [Recovered/Resolved]
  - Visual impairment [Recovered/Resolved]
  - Pelvic pain [Recovering/Resolving]
  - Fatigue [Recovering/Resolving]
